FAERS Safety Report 5501298-9 (Version None)
Quarter: 2007Q4

REPORT INFORMATION
  Report Type: 
  Country: None (occurrence: None)
  Receive Date: 20071026
  Receipt Date: 20071015
  Transmission Date: 20080405
  Serious: Yes (Hospitalization)
  Sender: FDA-Public Use
  Company Number: 013233

PATIENT
  Age: 71 Year
  Sex: Female

DRUGS (3)
  1. PRIALT [Suspect]
     Indication: PAIN
     Dosage: UG, ONCE/HOUR, INTRATHECAL ; 1.04 UG, ONCE/HOUR, INTRATHECAL
     Route: 037
     Dates: start: 20071012
  2. PRIALT [Suspect]
     Indication: SPINAL COMPRESSION FRACTURE
     Dosage: UG, ONCE/HOUR, INTRATHECAL ; 1.04 UG, ONCE/HOUR, INTRATHECAL
     Route: 037
     Dates: start: 20071012
  3. DILAUDID [Concomitant]

REACTIONS (3)
  - DISORIENTATION [None]
  - HYPONATRAEMIA [None]
  - LETHARGY [None]
